FAERS Safety Report 21600929 (Version 2)
Quarter: 2023Q1

REPORT INFORMATION
  Report Type: Report from Study
  Country: US (occurrence: None)
  Receive Date: 20221116
  Receipt Date: 20230102
  Transmission Date: 20230417
  Serious: Yes (Hospitalization, Other)
  Sender: FDA-Public Use
  Company Number: US-Merck Healthcare KGaA-9364620

PATIENT
  Age: 53 Year
  Sex: Female

DRUGS (1)
  1. REBIF [Suspect]
     Active Substance: INTERFERON BETA-1A
     Indication: Multiple sclerosis
     Dosage: PREVIOUSLY REBIF PREFILLED SYRINGE
     Route: 058
     Dates: start: 20190304

REACTIONS (2)
  - Tooth extraction [Unknown]
  - Ludwig angina [Recovering/Resolving]

NARRATIVE: CASE EVENT DATE: 20221107
